FAERS Safety Report 5849948-1 (Version None)
Quarter: 2008Q3

REPORT INFORMATION
  Report Type: 
  Country: None (occurrence: None)
  Receive Date: 20080815
  Receipt Date: 20080813
  Transmission Date: 20090109
  Serious: No
  Sender: FDA-Public Use
  Company Number: LUP-0347

PATIENT
  Sex: Male
  Weight: 104.3273 kg

DRUGS (2)
  1. LISINOPRIL [Suspect]
     Indication: HYPERTENSION
     Dosage: 10 MG (10 MG, 1 IN 1 D)
  2. CRESTOR [Concomitant]

REACTIONS (1)
  - BLOOD PRESSURE INCREASED [None]
